FAERS Safety Report 20695415 (Version 1)
Quarter: 2022Q2

REPORT INFORMATION
  Report Type: Spontaneous
  Country: FR (occurrence: FR)
  Receive Date: 20220411
  Receipt Date: 20220411
  Transmission Date: 20220721
  Serious: Yes (Disabling)
  Sender: FDA-Public Use
  Company Number: FR-SAMSUNG BIOEPIS-SB-2022-08390

PATIENT
  Age: 56 Year
  Sex: Female

DRUGS (1)
  1. ETANERCEPT [Suspect]
     Active Substance: ETANERCEPT
     Indication: Rheumatoid arthritis
     Dosage: UNKNOWN
     Route: 058
     Dates: start: 202107

REACTIONS (6)
  - Chest pain [Unknown]
  - Palpitations [Unknown]
  - Dyspnoea [Unknown]
  - Bundle branch block left [Unknown]
  - Loss of personal independence in daily activities [Unknown]
  - Peripheral coldness [Unknown]
